FAERS Safety Report 9669727 (Version 2)
Quarter: 2013Q4

REPORT INFORMATION
  Report Type: Spontaneous
  Country: US (occurrence: US)
  Receive Date: 20131105
  Receipt Date: 20131122
  Transmission Date: 20140711
  Serious: Yes (Hospitalization)
  Sender: FDA-Public Use
  Company Number: US-ROXANE LABORATORIES, INC.-2013-RO-01768RO

PATIENT
  Age: 55 Year
  Sex: Female

DRUGS (1)
  1. PREDNISONE [Suspect]
     Indication: IDIOPATHIC PULMONARY FIBROSIS
     Dosage: 30 MG
     Dates: start: 20130915

REACTIONS (5)
  - Idiopathic pulmonary fibrosis [Recovered/Resolved]
  - Sensation of heaviness [Unknown]
  - Drug ineffective [Unknown]
  - Fluid retention [Unknown]
  - Product quality issue [Unknown]
